FAERS Safety Report 13668366 (Version 1)
Quarter: 2017Q2

REPORT INFORMATION
  Report Type: Spontaneous
  Country: US (occurrence: US)
  Receive Date: 20170619
  Receipt Date: 20170619
  Transmission Date: 20170830
  Serious: Yes (Disabling)
  Sender: FDA-Public Use
  Company Number: None

PATIENT
  Age: 42 Year
  Sex: Female
  Weight: 108 kg

DRUGS (2)
  1. KLONOPIN [Suspect]
     Active Substance: CLONAZEPAM
     Indication: INSOMNIA
     Route: 048
     Dates: start: 20100401, end: 20151221
  2. XANAX [Suspect]
     Active Substance: ALPRAZOLAM

REACTIONS (17)
  - Anxiety [None]
  - Disturbance in attention [None]
  - Myocardial infarction [None]
  - Aphasia [None]
  - Brain injury [None]
  - Nervous system disorder [None]
  - Suicidal ideation [None]
  - Amnesia [None]
  - Thinking abnormal [None]
  - Derealisation [None]
  - Cognitive disorder [None]
  - Confusional state [None]
  - Panic reaction [None]
  - Depression [None]
  - Dementia [None]
  - Myalgia [None]
  - Withdrawal syndrome [None]

NARRATIVE: CASE EVENT DATE: 20140602
